FAERS Safety Report 18443738 (Version 1)
Quarter: 2020Q4

REPORT INFORMATION
  Report Type: Spontaneous
  Country: US (occurrence: US)
  Receive Date: 20201030
  Receipt Date: 20201030
  Transmission Date: 20210114
  Serious: No
  Sender: FDA-Public Use
  Company Number: US-009507513-2010USA011061

PATIENT
  Age: 18 Year
  Sex: Female

DRUGS (2)
  1. NEXPLANON [Suspect]
     Active Substance: ETONOGESTREL
     Dosage: 1 ROD Q3 YEARS
     Dates: start: 20201027, end: 20201027
  2. NEXPLANON [Suspect]
     Active Substance: ETONOGESTREL
     Dosage: 1 DOSAGE FORM
     Route: 059
     Dates: start: 20201027

REACTIONS (3)
  - Device kink [Recovered/Resolved]
  - Complication of device insertion [Recovered/Resolved]
  - Implant site injury [Unknown]

NARRATIVE: CASE EVENT DATE: 20201027
